FAERS Safety Report 5204586-9 (Version None)
Quarter: 2007Q1

REPORT INFORMATION
  Report Type: 
  Country: None (occurrence: None)
  Receive Date: 20070110
  Receipt Date: 20060516
  Transmission Date: 20070707
  Serious: No
  Sender: FDA-Public Use
  Company Number: US-BRISTOL-MYERS SQUIBB COMPANY-13379177

PATIENT
  Age: 30 Year
  Sex: Female
  Weight: 50 kg

DRUGS (4)
  1. ABILIFY [Suspect]
     Indication: PSYCHOTIC DISORDER
     Route: 048
     Dates: end: 20060501
  2. ABILIFY [Suspect]
     Indication: DELUSION
     Route: 048
     Dates: end: 20060501
  3. CELEXA [Concomitant]
  4. CLONAZEPAM [Concomitant]

REACTIONS (2)
  - TREMOR [None]
  - VISION BLURRED [None]
